FAERS Safety Report 14326243 (Version 2)
Quarter: 2018Q1

REPORT INFORMATION
  Report Type: Report from Study
  Country: JP (occurrence: JP)
  Receive Date: 20171227
  Receipt Date: 20180323
  Transmission Date: 20180509
  Serious: Yes (Hospitalization, Other)
  Sender: FDA-Public Use
  Company Number: JP-ALXN-A201713003AA

PATIENT
  Age: 1 Year
  Sex: Female

DRUGS (8)
  1. STRENSIQ [Suspect]
     Active Substance: ASFOTASE ALFA
     Dosage: UNK, QOD
     Route: 058
     Dates: start: 20171127
  2. STRENSIQ [Suspect]
     Active Substance: ASFOTASE ALFA
     Indication: HYPOPHOSPHATASIA
     Dosage: 2 MG/KG, TIW
     Route: 058
     Dates: start: 20151126
  3. STRENSIQ [Suspect]
     Active Substance: ASFOTASE ALFA
     Dosage: 1 MG/KG, QD
     Route: 058
     Dates: start: 20171120
  4. REVATIO [Concomitant]
     Active Substance: SILDENAFIL CITRATE
     Indication: PULMONARY HYPERTENSION
     Dosage: UNK
     Route: 048
  5. SULBACILLIN [Concomitant]
     Active Substance: AMPICILLIN SODIUM\SULBACTAM SODIUM
     Indication: PNEUMONIA ASPIRATION
     Dosage: UNK
     Route: 042
  6. STRENSIQ [Suspect]
     Active Substance: ASFOTASE ALFA
     Dosage: 1.8 MG/KG, Q3W
     Route: 058
     Dates: start: 201709, end: 201710
  7. STRENSIQ [Suspect]
     Active Substance: ASFOTASE ALFA
     Dosage: 1.6 MG/KG, Q3W
     Route: 058
     Dates: start: 201710, end: 201711
  8. LASIX [Concomitant]
     Active Substance: FUROSEMIDE
     Indication: POLYURIA
     Dosage: 1 MG/KG, UNK
     Route: 048
     Dates: start: 201612

REACTIONS (3)
  - Hypercalcaemia [Not Recovered/Not Resolved]
  - Polyuria [Not Recovered/Not Resolved]
  - Drug ineffective [Not Recovered/Not Resolved]

NARRATIVE: CASE EVENT DATE: 201711
